FAERS Safety Report 9976594 (Version 1)
Quarter: 2014Q1

REPORT INFORMATION
  Report Type: Report from Study
  Country: US (occurrence: US)
  Receive Date: 20140306
  Receipt Date: 20140306
  Transmission Date: 20141002
  Serious: No
  Sender: FDA-Public Use
  Company Number: US-ABBVIE-13P-163-1166650-00

PATIENT
  Sex: Female

DRUGS (7)
  1. HUMIRA [Suspect]
     Indication: RHEUMATOID ARTHRITIS
     Route: 058
     Dates: start: 201109
  2. HUMIRA [Suspect]
     Route: 058
     Dates: start: 2011, end: 201307
  3. HUMIRA [Suspect]
     Route: 058
     Dates: start: 201309
  4. METHOTREXATE [Concomitant]
     Indication: RHEUMATOID ARTHRITIS
     Dates: end: 201307
  5. METHOTREXATE [Concomitant]
     Dates: start: 201309
  6. CYMBICORT [Concomitant]
     Indication: CHRONIC OBSTRUCTIVE PULMONARY DISEASE
  7. NASONEX [Concomitant]
     Indication: CHRONIC OBSTRUCTIVE PULMONARY DISEASE

REACTIONS (5)
  - Therapeutic response unexpected [Unknown]
  - Chronic obstructive pulmonary disease [Not Recovered/Not Resolved]
  - Influenza [Recovered/Resolved]
  - Tinea pedis [Recovered/Resolved]
  - Rheumatoid arthritis [Recovered/Resolved]
